FAERS Safety Report 5134284-1 (Version None)
Quarter: 2006Q4

REPORT INFORMATION
  Report Type: 
  Country: None (occurrence: None)
  Receive Date: 20061019
  Receipt Date: 20061010
  Transmission Date: 20070319
  Serious: No
  Sender: FDA-Public Use
  Company Number: DE-2006-030425

PATIENT
  Age: 33 Year
  Sex: Female

DRUGS (1)
  1. MIRENA [Suspect]
     Dosage: 20 UG/DAY, CONT, INTRA-UTERINE
     Route: 015
     Dates: start: 20060831, end: 20061011

REACTIONS (6)
  - COMPLICATION OF DEVICE REMOVAL [None]
  - CYST [None]
  - ENDOMETRIOSIS [None]
  - FLANK PAIN [None]
  - PROCEDURAL PAIN [None]
  - UTERINE PAIN [None]
